FAERS Safety Report 20920792 (Version 1)
Quarter: 2022Q2

REPORT INFORMATION
  Report Type: Spontaneous
  Country: US (occurrence: None)
  Receive Date: 20220606
  Receipt Date: 20220606
  Transmission Date: 20220720
  Serious: Yes (Other)
  Sender: FDA-Public Use
  Company Number: None

PATIENT
  Age: 24 Year
  Sex: Female
  Weight: 76.5 kg

DRUGS (1)
  1. BEBTELOVIMAB [Suspect]
     Active Substance: BEBTELOVIMAB
     Indication: Coronavirus test positive
     Dosage: OTHER FREQUENCY : ONE DOSE ONLY;?
     Route: 040
     Dates: start: 20220603, end: 20220603

REACTIONS (9)
  - Flushing [None]
  - Hyperhidrosis [None]
  - Throat tightness [None]
  - Chest discomfort [None]
  - Nausea [None]
  - Vision blurred [None]
  - Dizziness [None]
  - Dizziness [None]
  - Feeling hot [None]

NARRATIVE: CASE EVENT DATE: 20220603
